APPROVED DRUG PRODUCT: FELODIPINE
Active Ingredient: FELODIPINE
Strength: 2.5MG
Dosage Form/Route: TABLET, EXTENDED RELEASE;ORAL
Application: A203983 | Product #001
Applicant: JUBILANT GENERICS LTD
Approved: Aug 19, 2016 | RLD: No | RS: No | Type: DISCN